FAERS Safety Report 18648763 (Version 1)
Quarter: 2020Q4

REPORT INFORMATION
  Report Type: Spontaneous
  Country: US (occurrence: US)
  Receive Date: 20201221
  Receipt Date: 20201221
  Transmission Date: 20210114
  Serious: Yes (Life-Threatening, Hospitalization)
  Sender: FDA-Public Use
  Company Number: None

PATIENT
  Age: 64 Year
  Sex: Male

DRUGS (1)
  1. SODIUM CHLORIDE (SODIUM CHLORIDE 3% INHL 4ML) [Suspect]
     Active Substance: SODIUM CHLORIDE
     Dates: start: 20201013

REACTIONS (2)
  - Respiratory distress [None]
  - Hypoxia [None]

NARRATIVE: CASE EVENT DATE: 20201013
